FAERS Safety Report 22055177 (Version 1)
Quarter: 2023Q1

REPORT INFORMATION
  Report Type: Report from Study
  Country: US (occurrence: None)
  Receive Date: 20230302
  Receipt Date: 20230302
  Transmission Date: 20230418
  Serious: Yes (Other)
  Sender: FDA-Public Use
  Company Number: 2023A045476

PATIENT

DRUGS (1)
  1. BRILINTA [Suspect]
     Active Substance: TICAGRELOR
     Route: 048

REACTIONS (6)
  - Cough [Unknown]
  - Fatigue [Unknown]
  - Irritability [Unknown]
  - Speech disorder [Unknown]
  - COVID-19 [Unknown]
  - Epistaxis [Unknown]
